FAERS Safety Report 5265875-5 (Version None)
Quarter: 2007Q1

REPORT INFORMATION
  Report Type: 
  Country: None (occurrence: None)
  Receive Date: 20070312
  Receipt Date: 20070312
  Transmission Date: 20070707
  Serious: Yes (Other)
  Sender: FDA-Public Use
  Company Number: None

PATIENT
  Age: 49 Year
  Sex: Male
  Weight: 147.419 kg

DRUGS (1)
  1. AZITHROMYCIN [Suspect]
     Indication: VIRAL INFECTION
     Dosage: 2 TABLETS FIRST DAY ONE TABLET DAILY PO
     Route: 048
     Dates: start: 20070306, end: 20070310

REACTIONS (6)
  - ANXIETY [None]
  - BODY TEMPERATURE DECREASED [None]
  - DIZZINESS [None]
  - NIGHT SWEATS [None]
  - PALPITATIONS [None]
  - STOMACH DISCOMFORT [None]
